FAERS Safety Report 4845725-9 (Version None)
Quarter: 2005Q4

REPORT INFORMATION
  Report Type: 
  Country: None (occurrence: None)
  Receive Date: 20051206
  Receipt Date: 20051129
  Transmission Date: 20060501
  Serious: Yes (Other)
  Sender: FDA-Public Use
  Company Number: US-JNJFOC-20051200170

PATIENT
  Age: 31 Year
  Sex: Female
  Weight: 56.7 kg

DRUGS (3)
  1. DURAGESIC-100 [Suspect]
     Route: 062
  2. LORCET-HD [Concomitant]
  3. LORCET-HD [Concomitant]
     Indication: PAIN

REACTIONS (3)
  - ABORTION SPONTANEOUS [None]
  - DRUG INEFFECTIVE [None]
  - NAUSEA [None]
